FAERS Safety Report 9846617 (Version 5)
Quarter: 2014Q2

REPORT INFORMATION
  Report Type: Spontaneous
  Country: GB (occurrence: GB)
  Receive Date: 20140127
  Receipt Date: 20140610
  Transmission Date: 20141212
  Serious: Yes (Hospitalization, Disabling)
  Sender: FDA-Public Use
  Company Number: PHFR2014GB000621

PATIENT
  Age: 63 Year
  Sex: Male

DRUGS (13)
  1. CLOZARIL [Suspect]
     Indication: SCHIZOPHRENIA
     Dosage: 25 MG, BID
     Route: 048
     Dates: start: 200702
  2. CLOZARIL [Suspect]
     Dosage: 250 MG, BID
     Route: 048
     Dates: start: 2007, end: 20140129
  3. CLOZARIL [Suspect]
     Dosage: UNK UKN, UNK
  4. SODIUM BICARBONATE [Concomitant]
     Indication: CONSTIPATION
     Dosage: 100 MG, QD
     Route: 048
  5. SIMVASTATIN [Concomitant]
     Indication: BLOOD CHOLESTEROL INCREASED
     Dosage: 40 MG, QD
     Route: 048
  6. LANSOPRAZOLE [Concomitant]
     Indication: REFLUX GASTRITIS
     Dosage: 30 MG, QD
     Route: 048
  7. GLICLAZIDE [Concomitant]
     Indication: DIABETES MELLITUS
     Dosage: 85 MG, BID
     Route: 048
  8. METFORMIN [Concomitant]
     Indication: DIABETES MELLITUS
     Dosage: 5 MG, BID
     Route: 048
  9. AMLODIPINE [Concomitant]
     Indication: HYPERTENSION
     Dosage: 5 MG, QD
     Route: 048
  10. RAMIPRIL [Concomitant]
     Indication: HYPERTENSION
     Dosage: 5 MG, BID
     Route: 048
  11. ASPIRINE [Concomitant]
     Dosage: 70 MG, UNK
     Route: 048
  12. GTN [Concomitant]
     Dosage: UNK UKN, PRN
  13. SALBUTAMOL [Concomitant]
     Dosage: UNK UKN, UNK

REACTIONS (8)
  - Pneumonia [Recovered/Resolved]
  - Lower respiratory tract infection [Recovered/Resolved]
  - Malaise [Recovered/Resolved]
  - Dizziness [Recovered/Resolved]
  - C-reactive protein increased [Recovered/Resolved]
  - White blood cell count increased [Recovered/Resolved]
  - Neutrophil count increased [Recovered/Resolved]
  - Platelet count decreased [Recovered/Resolved]
